FAERS Safety Report 4956790-2 (Version None)
Quarter: 2006Q1

REPORT INFORMATION
  Report Type: 
  Country: None (occurrence: None)
  Receive Date: 20060323
  Receipt Date: 20060315
  Transmission Date: 20060701
  Serious: Yes (Life-Threatening, Hospitalization)
  Sender: FDA-Public Use
  Company Number: 056-C5013-06030587

PATIENT
  Age: 65 Year
  Sex: Female
  Weight: 55 kg

DRUGS (1)
  1. REVLIMID [Suspect]
     Indication: MYELODYSPLASTIC SYNDROME
     Dosage: 10 MG, OD, ORAL
     Route: 048
     Dates: start: 20060215, end: 20060314

REACTIONS (11)
  - ANAEMIA [None]
  - ARTERIAL THROMBOSIS [None]
  - CONFUSIONAL STATE [None]
  - DISEASE RECURRENCE [None]
  - EAR PAIN [None]
  - GENERAL PHYSICAL HEALTH DETERIORATION [None]
  - HEADACHE [None]
  - HYPOACUSIS [None]
  - JUGULAR VEIN THROMBOSIS [None]
  - PULMONARY EMBOLISM [None]
  - PYELONEPHRITIS [None]
